FAERS Safety Report 5927523-8 (Version None)
Quarter: 2008Q4

REPORT INFORMATION
  Report Type: 
  Country: None (occurrence: None)
  Receive Date: 20081023
  Receipt Date: 20081013
  Transmission Date: 20090506
  Serious: Yes (Other)
  Sender: FDA-Public Use
  Company Number: CN-ROCHE-580841

PATIENT
  Age: 71 Year
  Sex: Male
  Weight: 61 kg

DRUGS (2)
  1. XELODA [Suspect]
     Indication: COLORECTAL CANCER
     Route: 048
     Dates: start: 20080520, end: 20080811
  2. XELODA [Suspect]
     Route: 048
     Dates: start: 20080812, end: 20080905

REACTIONS (3)
  - ARTHRALGIA [None]
  - BLOOD URIC ACID INCREASED [None]
  - MUSCLE ATROPHY [None]
